FAERS Safety Report 4940692-1 (Version None)
Quarter: 2006Q1

REPORT INFORMATION
  Report Type: 
  Country: None (occurrence: None)
  Receive Date: 20060313
  Receipt Date: 20050421
  Transmission Date: 20060701
  Serious: Yes (Other)
  Sender: FDA-Public Use
  Company Number: GB-RB-1541-2005

PATIENT
  Sex: Female

DRUGS (1)
  1. BUPRENORPHINE HCL [Suspect]
     Indication: DETOXIFICATION
     Route: 060

REACTIONS (2)
  - DRUG EXPOSURE DURING PREGNANCY [None]
  - PREMATURE SEPARATION OF PLACENTA [None]
